FAERS Safety Report 6845493-5 (Version None)
Quarter: 2010Q3

REPORT INFORMATION
  Report Type: 
  Country: None (occurrence: None)
  Receive Date: 20100715
  Receipt Date: 20070821
  Transmission Date: 20110219
  Serious: No
  Sender: FDA-Public Use
  Company Number: US-PFIZER INC-2007071035

PATIENT
  Sex: Male
  Weight: 65.9 kg

DRUGS (6)
  1. CHANTIX [Suspect]
     Indication: SMOKING CESSATION THERAPY
     Dates: start: 20070630
  2. BUTALBITAL W/ ASPIRIN + CAFFEINE [Concomitant]
     Indication: MIGRAINE
  3. VICODIN [Concomitant]
     Indication: BACK DISORDER
  4. VICODIN [Concomitant]
     Indication: MUSCULOSKELETAL DISCOMFORT
  5. SOMA [Concomitant]
     Indication: MUSCLE SPASMS
  6. MAXALT [Concomitant]

REACTIONS (1)
  - OEDEMA PERIPHERAL [None]
